FAERS Safety Report 5429485-9 (Version None)
Quarter: 2007Q3

REPORT INFORMATION
  Report Type: 
  Country: None (occurrence: None)
  Receive Date: 20070829
  Receipt Date: 20070824
  Transmission Date: 20080115
  Serious: Yes (Hospitalization)
  Sender: FDA-Public Use
  Company Number: B0482648A

PATIENT
  Age: 86 Year
  Sex: Female
  Weight: 35 kg

DRUGS (27)
  1. PAXIL [Suspect]
     Indication: DEPRESSION
     Dosage: 10MG PER DAY
     Route: 048
     Dates: start: 20070724, end: 20070729
  2. PREDONINE [Concomitant]
     Route: 048
     Dates: start: 20070622, end: 20070808
  3. TANNALBIN [Concomitant]
     Dosage: 2G PER DAY
     Route: 048
     Dates: start: 20070723, end: 20070729
  4. LAC B [Concomitant]
     Dosage: 3G PER DAY
     Route: 048
     Dates: start: 20070622, end: 20070815
  5. FUROSEMIDE [Concomitant]
     Dosage: 80MG PER DAY
     Route: 048
     Dates: start: 20070622, end: 20070815
  6. ALDACTONE [Concomitant]
     Dosage: 25MG PER DAY
     Route: 048
     Dates: start: 20070622, end: 20070815
  7. LANSOPRAZOLE [Concomitant]
     Dosage: 15MG PER DAY
     Route: 048
     Dates: start: 20070622, end: 20070815
  8. VANCOMYCIN HYDROCHLORIDE [Concomitant]
     Route: 048
     Dates: start: 20070626, end: 20070813
  9. SIMPLE SYRUP [Concomitant]
     Route: 048
     Dates: start: 20070626, end: 20070730
  10. GLYCERIN [Concomitant]
     Dosage: 30ML PER DAY
     Route: 054
     Dates: start: 20070702, end: 20070702
  11. ASPARA K [Concomitant]
     Dosage: 500MG PER DAY
     Route: 048
     Dates: start: 20070712, end: 20070725
  12. ENSURE [Concomitant]
     Dosage: 500ML PER DAY
     Route: 048
     Dates: start: 20070714, end: 20070715
  13. FULCALIQ [Concomitant]
     Dosage: 1103ML PER DAY
     Route: 042
     Dates: start: 20070620, end: 20070623
  14. SODIUM CHLORIDE INJ [Concomitant]
     Dosage: 20ML PER DAY
     Route: 042
     Dates: start: 20070620, end: 20070623
  15. FUROSEMIDE [Concomitant]
     Dosage: 20MG PER DAY
     Route: 042
     Dates: start: 20070621, end: 20070626
  16. UNKNOWN DRUG [Concomitant]
     Dosage: 500ML PER DAY
     Route: 042
     Dates: start: 20070625, end: 20070627
  17. SOLITA-T NO 3 [Concomitant]
     Dosage: 200ML PER DAY
     Route: 042
     Dates: start: 20070628, end: 20070704
  18. GLUCOSE [Concomitant]
     Dosage: 20ML PER DAY
     Route: 042
     Dates: start: 20070628, end: 20070704
  19. ALBUMIN (HUMAN) [Concomitant]
     Route: 042
     Dates: start: 20070628, end: 20070630
  20. URINORM [Concomitant]
     Route: 048
     Dates: start: 20070731, end: 20070815
  21. UNKNOWN DRUG [Concomitant]
     Route: 042
     Dates: start: 20070731, end: 20070802
  22. PRIMPERAN INJ [Concomitant]
     Dosage: 10MG PER DAY
     Route: 042
     Dates: start: 20070731, end: 20070802
  23. LEVOFLOXACIN [Concomitant]
     Dosage: 2DROP PER DAY
     Route: 031
     Dates: start: 20070801, end: 20070802
  24. HIRUDOID [Concomitant]
     Route: 061
     Dates: start: 20070801, end: 20070802
  25. PREDNISOLONE [Concomitant]
     Route: 048
     Dates: start: 20070726, end: 20070815
  26. WHITE PETROLATUM [Concomitant]
     Route: 061
     Dates: start: 20070805, end: 20070805
  27. ISOTONIC SODIUM CHLORIDE SOLUTION [Concomitant]
     Route: 042
     Dates: start: 20070731, end: 20070802

REACTIONS (4)
  - ANOREXIA [None]
  - HAEMORRHAGE SUBCUTANEOUS [None]
  - PLATELET COUNT NORMAL [None]
  - VOMITING [None]
